FAERS Safety Report 20632611 (Version 3)
Quarter: 2022Q4

REPORT INFORMATION
  Report Type: Report from Study
  Country: KR (occurrence: KR)
  Receive Date: 20220324
  Receipt Date: 20221109
  Transmission Date: 20230113
  Serious: Yes (Other)
  Sender: FDA-Public Use
  Company Number: KR-009507513-2203KOR007232

PATIENT
  Age: 28 Year
  Sex: Female
  Weight: 51.8 kg

DRUGS (37)
  1. LETERMOVIR [Suspect]
     Active Substance: LETERMOVIR
     Indication: Antiviral prophylaxis
     Dosage: 1 TABLET, 480MG, ONCE DAILY
     Route: 048
     Dates: start: 20201117, end: 20201119
  2. ALLOPURINOL [Concomitant]
     Active Substance: ALLOPURINOL
     Indication: Acute myeloid leukaemia
     Dosage: 100 MILLIGRAM, TID
     Route: 042
     Dates: start: 20201106, end: 20201110
  3. THYMOGLOBULINE [Concomitant]
     Active Substance: LAPINE T-LYMPHOCYTE IMMUNE GLOBULIN
     Indication: Acute myeloid leukaemia
     Dosage: 84.38 MILLIGRAM, QD
     Route: 042
     Dates: start: 20201109, end: 20201112
  4. BUSULFEX [Concomitant]
     Active Substance: BUSULFAN
     Indication: Acute myeloid leukaemia
     Dosage: 216 MILLIGRAM, QD
     Route: 042
     Dates: start: 20201107, end: 20201108
  5. FLUDARA [Concomitant]
     Active Substance: FLUDARABINE PHOSPHATE
     Indication: Acute myeloid leukaemia
     Dosage: 51.30 MILLIGRAM, QD
     Route: 042
     Dates: start: 20201106, end: 20201110
  6. METHOTREXATE [Concomitant]
     Active Substance: METHOTREXATE
     Indication: Prophylaxis against graft versus host disease
     Dosage: 8.35 MILLIGRAM, QD
     Route: 042
     Dates: start: 20201115, end: 20201115
  7. METHOTREXATE [Concomitant]
     Active Substance: METHOTREXATE
     Dosage: 8.35 MILLIGRAM, QD
     Route: 042
     Dates: start: 20201117, end: 20201117
  8. METHOTREXATE [Concomitant]
     Active Substance: METHOTREXATE
     Dosage: 8.35 MILLIGRAM, QD
     Route: 042
     Dates: start: 20201120, end: 20201120
  9. PFIZER LEUCOVORIN [Concomitant]
     Indication: Acute myeloid leukaemia
     Dosage: 18 MILLIGRAM, QD
     Route: 042
     Dates: start: 20201115, end: 20201115
  10. PFIZER LEUCOVORIN [Concomitant]
     Dosage: 24 MILLIGRAM, QD
     Route: 042
     Dates: start: 20201117, end: 20201117
  11. PFIZER LEUCOVORIN [Concomitant]
     Dosage: 24 MILLIGRAM, QD
     Route: 042
     Dates: start: 20201120, end: 20201120
  12. WI HYDANTOIN [Concomitant]
     Indication: Acute myeloid leukaemia
     Dosage: 100 MILLIGRAM, TID
     Route: 048
     Dates: start: 20201106, end: 20201109
  13. K CAB [Concomitant]
     Indication: Gastritis prophylaxis
     Dosage: 50 MILLIGRAM, QD
     Route: 048
     Dates: start: 20201103, end: 20201117
  14. K CAB [Concomitant]
     Indication: Gastrooesophageal reflux prophylaxis
  15. URSODIOL [Concomitant]
     Active Substance: URSODIOL
     Indication: Prophylaxis
     Dosage: 100 MILLIGRAM, TID
     Route: 048
     Dates: start: 20201103
  16. GODEX [ADENINE HYDROCHLORIDE;CARNITINE OROTATE;CYANOCOBALAMIN;LIVER EX [Concomitant]
     Indication: Prophylaxis
     Dosage: 1 DOSAGE FORM, TID
     Route: 048
     Dates: start: 20201104, end: 20201117
  17. PREDISOL [METHYLPREDNISOLONE] [Concomitant]
     Indication: Acute myeloid leukaemia
     Dosage: 125 MILLIGRAM, QD
     Route: 042
     Dates: start: 20201109, end: 20201111
  18. PREDISOL [METHYLPREDNISOLONE] [Concomitant]
     Dosage: 250 MILLIGRAM, QD
     Route: 042
     Dates: start: 20201112, end: 20201114
  19. ETHINYL ESTRADIOL\GESTODENE [Concomitant]
     Active Substance: ETHINYL ESTRADIOL\GESTODENE
     Indication: Vaginal haemorrhage
     Dosage: 1 TABLET, QD
     Route: 048
     Dates: start: 20201104, end: 20201117
  20. ETHINYL ESTRADIOL\GESTODENE [Concomitant]
     Active Substance: ETHINYL ESTRADIOL\GESTODENE
     Dosage: 1 TABLET, QD
     Route: 048
     Dates: start: 20201121, end: 20201203
  21. SPORANOX [Concomitant]
     Active Substance: ITRACONAZOLE
     Indication: Bronchopulmonary aspergillosis
     Dosage: 400 MILLIGRAM, QD
     Route: 048
     Dates: start: 20201103, end: 20201118
  22. SPORANOX [Concomitant]
     Active Substance: ITRACONAZOLE
     Dosage: 400 MILLIGRAM, QD
     Route: 048
     Dates: start: 20201126, end: 20201203
  23. MIRTAZAPINE [Concomitant]
     Active Substance: MIRTAZAPINE
     Indication: Prophylaxis
     Dosage: 7.5 MILLIGRAM, QD
     Route: 048
     Dates: start: 20201103, end: 20201107
  24. MIRTAZAPINE [Concomitant]
     Active Substance: MIRTAZAPINE
     Dosage: 7.5 MILLIGRAM, QD
     Route: 048
     Dates: start: 20201109, end: 20201111
  25. MELATONIN [Concomitant]
     Active Substance: MELATONIN
     Indication: Prophylaxis
     Dosage: 2 MILLIGRAM, QD
     Route: 048
     Dates: start: 20201112, end: 20201117
  26. BENZYDAMINE HYDROCHLORIDE [Concomitant]
     Active Substance: BENZYDAMINE HYDROCHLORIDE
     Indication: Stomatitis
     Dosage: 15 MILLIGRAM, PRN
     Route: 048
     Dates: start: 20201103, end: 20201103
  27. TERRASIL ANTI FUNGAL TREATMENT [Concomitant]
     Indication: Stomatitis
     Dosage: 0.5 MILLILITER, PRN
     Route: 048
     Dates: start: 20201117, end: 20201203
  28. PROGRAF [Concomitant]
     Active Substance: TACROLIMUS
     Indication: Prophylaxis against graft versus host disease
     Dosage: 1.98 MILLIGRAM, QD
     Route: 042
     Dates: start: 20201112, end: 20201116
  29. PROGRAF [Concomitant]
     Active Substance: TACROLIMUS
     Dosage: 1.1 MILLIGRAM, QD
     Route: 042
     Dates: start: 20201117, end: 20201120
  30. .ALPHA.-TOCOPHEROL ACETATE\ALLANTOIN\LIDOCAINE\PREDNISOLONE [Concomitant]
     Active Substance: .ALPHA.-TOCOPHEROL ACETATE\ALLANTOIN\LIDOCAINE\PREDNISOLONE
     Indication: Haemorrhoids
     Dosage: 1 EA, ANAL
     Dates: start: 20201114, end: 20201125
  31. ZOYLEX [ACICLOVIR] [Concomitant]
     Indication: Infection prophylaxis
     Dosage: 325 MILLIGRAM, BID
     Route: 042
     Dates: start: 20201103, end: 20201125
  32. ATIVAN [Concomitant]
     Active Substance: LORAZEPAM
     Indication: Nausea
     Dosage: 1 MILLIGRAM, QD
     Route: 042
     Dates: start: 20201104, end: 20201104
  33. ATIVAN [Concomitant]
     Active Substance: LORAZEPAM
     Dosage: 1 MILLIGRAM, QD
     Route: 042
     Dates: start: 20201118, end: 20201118
  34. ATIVAN [Concomitant]
     Active Substance: LORAZEPAM
     Dosage: 1 MILLIGRAM, QD
     Route: 042
     Dates: start: 20201120, end: 20201120
  35. FOTAGEL [Concomitant]
     Indication: Diarrhoea
     Dosage: 20 MILLILITER, BID
     Route: 048
     Dates: start: 20201110, end: 20201111
  36. FOTAGEL [Concomitant]
     Dosage: 20 MILLILITER, TID
     Route: 048
     Dates: start: 20201116, end: 20201117
  37. FOTAGEL [Concomitant]
     Dosage: 20 MILLILITER, QD
     Route: 048
     Dates: start: 20201118, end: 20201118

REACTIONS (8)
  - Cytomegalovirus gastroenteritis [Unknown]
  - Cytomegalovirus colitis [Unknown]
  - Febrile neutropenia [Recovered/Resolved]
  - Drug ineffective [Unknown]
  - Cytomegalovirus test positive [Recovered/Resolved]
  - Hypotension [Recovered/Resolved]
  - Abdominal pain upper [Recovered/Resolved]
  - Rhinorrhoea [Recovered/Resolved]

NARRATIVE: CASE EVENT DATE: 20201118
